FAERS Safety Report 14672540 (Version 3)
Quarter: 2018Q2

REPORT INFORMATION
  Report Type: Spontaneous
  Country: US (occurrence: US)
  Receive Date: 20180323
  Receipt Date: 20180517
  Transmission Date: 20180711
  Serious: No
  Sender: FDA-Public Use
  Company Number: US-PFIZER INC-2018117636

PATIENT
  Age: 11 Year
  Sex: Female

DRUGS (1)
  1. QUILLICHEW ER [Suspect]
     Active Substance: METHYLPHENIDATE HYDROCHLORIDE
     Dosage: UNK, UNK (1 AND 1/2 TABLET)

REACTIONS (5)
  - Anxiety [Unknown]
  - Disturbance in social behaviour [Unknown]
  - Crying [Unknown]
  - Mood swings [Unknown]
  - Irritability [Unknown]
